FAERS Safety Report 8344997 (Version 2)
Quarter: 2013Q2

REPORT INFORMATION
  Report Type: Spontaneous
  Country: US (occurrence: None)
  Receive Date: 20111209
  Receipt Date: 20120912
  Transmission Date: 20140414
  Serious: Yes (Other)
  Sender: FDA-Public Use
  Company Number: 2011SP051805

PATIENT
  Age: 55 Year
  Sex: Male

DRUGS (4)
  1. VICTRELIS [Suspect]
     Indication: CHRONIC HEPATITIS C
     Dosage: 800 MG;TID; PO
     Route: 048
     Dates: start: 20111023
  2. PEGINTRON [Suspect]
     Indication: PRODUCT USED FOR UNKNOWN INDICATION
  3. RIBAVIRIN [Concomitant]
     Indication: PRODUCT USED FOR UNKNOWN INDICATION
  4. CLARITIN [Concomitant]

REACTIONS (7)
  - TOTAL LUNG CAPACITY DECREASED [None]
  - DYSGEUSIA [None]
  - NAUSEA [None]
  - INFLUENZA LIKE ILLNESS [None]
  - INSOMNIA [None]
  - Rash [None]
  - Dyspnoea [None]
